FAERS Safety Report 11448129 (Version 1)
Quarter: 2015Q3

REPORT INFORMATION
  Report Type: Spontaneous
  Country: US (occurrence: US)
  Receive Date: 20150831
  Receipt Date: 20150831
  Transmission Date: 20151125
  Serious: No
  Sender: FDA-Public Use
  Company Number: US-ELI_LILLY_AND_COMPANY-US200906002510

PATIENT
  Age: 52 Year
  Sex: Male

DRUGS (1)
  1. CYMBALTA [Suspect]
     Active Substance: DULOXETINE HYDROCHLORIDE
     Indication: MAJOR DEPRESSION
     Dosage: 30 MG, UNK
     Dates: start: 20090601, end: 20090602

REACTIONS (5)
  - Tremor [Unknown]
  - Feeling abnormal [Unknown]
  - Decreased appetite [Unknown]
  - Dyspepsia [Unknown]
  - Memory impairment [Unknown]

NARRATIVE: CASE EVENT DATE: 20090601
